FAERS Safety Report 11178913 (Version 2)
Quarter: 2015Q2

REPORT INFORMATION
  Report Type: Spontaneous
  Country: BR (occurrence: BR)
  Receive Date: 20150610
  Receipt Date: 20150629
  Transmission Date: 20150821
  Serious: No
  Sender: FDA-Public Use
  Company Number: BR-ELI_LILLY_AND_COMPANY-BR201506000315

PATIENT
  Age: 49 Year
  Sex: Female
  Weight: 53 kg

DRUGS (5)
  1. CYMBALTA [Suspect]
     Active Substance: DULOXETINE HYDROCHLORIDE
     Indication: PAIN
     Dosage: 30 MG, EACH MORNING
     Route: 048
     Dates: start: 20150528, end: 20150606
  2. IBUPROFEN. [Suspect]
     Active Substance: IBUPROFEN
     Indication: PRODUCT USED FOR UNKNOWN INDICATION
     Dosage: UNK, UNKNOWN
     Route: 065
  3. AMYTRIL [Concomitant]
     Active Substance: AMITRIPTYLINE HYDROCHLORIDE
     Indication: MUSCLE DISORDER
     Dosage: UNK, UNKNOWN
     Route: 065
     Dates: start: 201412
  4. AMYTRIL [Concomitant]
     Active Substance: AMITRIPTYLINE HYDROCHLORIDE
     Indication: PAIN
  5. ANTIVIRALS FOR TREATMENT OF HIV INFECTIONS, C [Concomitant]
     Active Substance: UNSPECIFIED INGREDIENT
     Dosage: UNK, UNKNOWN
     Route: 065

REACTIONS (18)
  - Malaise [Recovering/Resolving]
  - Oropharyngeal pain [Recovering/Resolving]
  - Abdominal pain upper [Recovering/Resolving]
  - Hepatic pain [Recovering/Resolving]
  - Liver disorder [Recovering/Resolving]
  - Swelling [Recovering/Resolving]
  - Feeding disorder [Recovering/Resolving]
  - Tremor [Recovering/Resolving]
  - Aggression [Recovering/Resolving]
  - Drug ineffective [Recovering/Resolving]
  - Decreased appetite [Recovering/Resolving]
  - Dyspepsia [Recovering/Resolving]
  - Dysgeusia [Recovering/Resolving]
  - Dysphonia [Recovering/Resolving]
  - Somnolence [Recovering/Resolving]
  - Ageusia [Recovering/Resolving]
  - Irritability [Recovering/Resolving]
  - Nausea [Recovering/Resolving]

NARRATIVE: CASE EVENT DATE: 20150528
